FAERS Safety Report 9649665 (Version 2)
Quarter: 2013Q4

REPORT INFORMATION
  Report Type: Report from Study
  Country: JP (occurrence: JP)
  Receive Date: 20131028
  Receipt Date: 20131129
  Transmission Date: 20140711
  Serious: Yes (Death)
  Sender: FDA-Public Use
  Company Number: JP-TAKEDA-2013TJP002107

PATIENT
  Age: 69 Year
  Sex: Male
  Weight: 62 kg

DRUGS (13)
  1. LANSOPRAZOLE [Suspect]
     Indication: PROPHYLAXIS AGAINST GASTROINTESTINAL ULCER
     Dosage: 15 MG, QD
     Route: 048
     Dates: start: 20120810, end: 20130423
  2. BAYASPIRIN [Concomitant]
     Indication: THROMBOSIS PROPHYLAXIS
     Dosage: 100 MG, QD
     Route: 048
     Dates: start: 20120810, end: 20130423
  3. MAINTATE [Concomitant]
     Dosage: 2.5 MG, 1 DAY.
     Route: 048
     Dates: start: 20120810, end: 20130423
  4. LIPITOR [Concomitant]
     Dosage: 5 MG, 1 DAY
     Route: 048
     Dates: start: 20120810, end: 20130423
  5. NU-LOTAN [Concomitant]
     Dosage: 12.5 MG, 1 DAY
     Route: 048
     Dates: start: 20120810, end: 20130423
  6. PLAVIX [Concomitant]
     Indication: THROMBOSIS PROPHYLAXIS
     Dosage: 50 MG 1DAY
     Route: 048
     Dates: start: 20120810, end: 20130423
  7. SIGMART [Concomitant]
     Indication: THROMBOSIS PROPHYLAXIS
     Dosage: 15 MG 1DAY
     Route: 065
     Dates: start: 20120810, end: 20130423
  8. OPALMON [Concomitant]
     Indication: THROMBOSIS PROPHYLAXIS
     Dosage: 15 ?G, 1 DAY
     Route: 048
     Dates: start: 20120810, end: 20130423
  9. METGLUCO [Concomitant]
     Indication: DIABETES MELLITUS
     Dosage: 500 MG 1 DAY
     Route: 048
     Dates: start: 20130201, end: 20130423
  10. STARSIS [Concomitant]
     Dosage: 90 MG, 1 DAY
     Route: 048
     Dates: end: 20130423
  11. AMARYL [Concomitant]
     Dosage: 3 MG, 1 DAY
     Route: 048
     Dates: end: 20130423
  12. GLACTIV [Concomitant]
     Dosage: 100 MG, 1 DAY
     Route: 048
     Dates: end: 20130423
  13. URIEF [Concomitant]
     Dosage: 8 MG, 1DAY
     Route: 048
     Dates: end: 20130423

REACTIONS (1)
  - Acute coronary syndrome [Fatal]
